FAERS Safety Report 19597253 (Version 5)
Quarter: 2022Q2

REPORT INFORMATION
  Report Type: Report from Study
  Country: US (occurrence: US)
  Receive Date: 20210722
  Receipt Date: 20220622
  Transmission Date: 20220721
  Serious: Yes (Hospitalization, Other)
  Sender: FDA-Public Use
  Company Number: US-TG THERAPEUTICS INC.-TGT002039

PATIENT
  Age: 74 Year
  Sex: Male
  Weight: 79.365 kg

DRUGS (14)
  1. UBLITUXIMAB [Suspect]
     Active Substance: UBLITUXIMAB
     Indication: Mantle cell lymphoma
     Dosage: 900 MILLIGRAM, X1 PER WEEK
     Route: 042
     Dates: start: 20210708, end: 20210729
  2. UMBRALISIB [Suspect]
     Active Substance: UMBRALISIB
     Indication: Mantle cell lymphoma
     Dosage: 800 MILLIGRAM, QD
     Route: 048
     Dates: start: 20210708, end: 20210729
  3. FUROSEMIDE [Concomitant]
     Active Substance: FUROSEMIDE
     Indication: Oedema
     Dosage: 20 MILLIGRAM, QD
     Route: 048
     Dates: start: 20210622
  4. PRAVASTATIN [Concomitant]
     Active Substance: PRAVASTATIN
     Indication: Hyperlipidaemia
     Dosage: 20 MILLIGRAM, DAILY HS
     Route: 048
     Dates: start: 20200514
  5. ALPRAZOLAM [Concomitant]
     Active Substance: ALPRAZOLAM
     Indication: Anxiety
     Dosage: 0.5 MILLIGRAM, 2 TABS PRN UP TO 2 DOSES
     Route: 048
     Dates: start: 20180606
  6. OMEPRAZOLE [Concomitant]
     Active Substance: OMEPRAZOLE
     Indication: Gastrooesophageal reflux disease
     Dosage: 40 MILLIGRAM, QD
     Route: 048
     Dates: start: 20170602
  7. CHOLECALCIFEROL [Concomitant]
     Active Substance: CHOLECALCIFEROL
     Indication: Supplementation therapy
     Dosage: 125 MICROGRAM, 1-2 TABS QD
     Route: 048
     Dates: start: 20160107
  8. ONDANSETRON HYDROCHLORIDE [Concomitant]
     Active Substance: ONDANSETRON HYDROCHLORIDE
     Indication: Nausea
     Dosage: 8 MILLIGRAM, EVERY 8 HOURS PRN
     Route: 048
     Dates: start: 2018
  9. ONDANSETRON HYDROCHLORIDE [Concomitant]
     Active Substance: ONDANSETRON HYDROCHLORIDE
     Indication: Vomiting
  10. PROCHLORPERAZINE [Concomitant]
     Active Substance: PROCHLORPERAZINE
     Indication: Nausea
     Dosage: 10 MILLIGRAM, EVERY 6 HOURS, PRN
     Route: 048
     Dates: start: 2018
  11. PROCHLORPERAZINE [Concomitant]
     Active Substance: PROCHLORPERAZINE
     Indication: Vomiting
  12. ACETAMINOPHEN [Concomitant]
     Active Substance: ACETAMINOPHEN
     Indication: Headache
     Dosage: 325-650 MILLIGRAM, Q4-6 HOURS, PRN
     Route: 048
     Dates: start: 2015
  13. ALLOPURINOL [Concomitant]
     Active Substance: ALLOPURINOL
     Indication: Prophylaxis
     Dosage: 300 MILLIGRAM, QD
     Route: 048
     Dates: start: 20210628
  14. BACTRIM DS [Concomitant]
     Active Substance: SULFAMETHOXAZOLE\TRIMETHOPRIM
     Indication: Prophylaxis
     Dosage: 800-160MG 1 TAB Q MON, WED, FRI
     Dates: start: 20210708

REACTIONS (2)
  - Intra-abdominal haemorrhage [Recovered/Resolved]
  - Embolism [Recovered/Resolved with Sequelae]

NARRATIVE: CASE EVENT DATE: 20210713
